FAERS Safety Report 7280033-0 (Version None)
Quarter: 2011Q1

REPORT INFORMATION
  Report Type: 
  Country: None (occurrence: None)
  Receive Date: 20110203
  Receipt Date: 20110203
  Transmission Date: 20110831
  Serious: Yes (Other)
  Sender: FDA-Public Use
  Company Number: None

PATIENT
  Sex: Female
  Weight: 74.8435 kg

DRUGS (1)
  1. ALENDRONATE 70 MG [Suspect]
     Indication: OSTEOPENIA
     Dosage: 70 MG 1 WEEKLY
     Dates: start: 20101101, end: 20110107

REACTIONS (4)
  - BACK PAIN [None]
  - TREATMENT NONCOMPLIANCE [None]
  - DYSPEPSIA [None]
  - DIZZINESS [None]
